FAERS Safety Report 19255402 (Version 1)
Quarter: 2021Q2

REPORT INFORMATION
  Report Type: Spontaneous
  Country: US (occurrence: US)
  Receive Date: 20210513
  Receipt Date: 20210513
  Transmission Date: 20210717
  Serious: No
  Sender: FDA-Public Use
  Company Number: US-UCBSA-2021003583

PATIENT
  Sex: Male
  Weight: 67 kg

DRUGS (1)
  1. CIMZIA [Suspect]
     Active Substance: CERTOLIZUMAB PEGOL
     Indication: SPONDYLOARTHROPATHY
     Dosage: 200 MILLIGRAM, UNK
     Route: 058
     Dates: end: 20210120

REACTIONS (4)
  - Fatigue [Unknown]
  - Pain [Unknown]
  - Insomnia [Unknown]
  - Spondyloarthropathy [Unknown]
